FAERS Safety Report 9758162 (Version 1)
Quarter: 2013Q4

REPORT INFORMATION
  Report Type: Spontaneous
  Country: US (occurrence: None)
  Receive Date: 20131213
  Receipt Date: 20131213
  Transmission Date: 20140711
  Serious: Yes (Life-Threatening, Hospitalization)
  Sender: FDA-Public Use
  Company Number: None

PATIENT
  Age: 28 Year
  Sex: Female
  Weight: 68.95 kg

DRUGS (1)
  1. LARIAM [Suspect]
     Indication: MALARIA PROPHYLAXIS
     Dosage: 1 PILL WEEKLY  ONCE WEEKLY TAKEN BY MOUTH
     Route: 048
     Dates: start: 20131005, end: 20131026

REACTIONS (19)
  - Paranoia [None]
  - Anxiety [None]
  - Panic attack [None]
  - Dizziness [None]
  - Muscle spasms [None]
  - Headache [None]
  - Vertigo [None]
  - Insomnia [None]
  - Visual impairment [None]
  - Eye pain [None]
  - Asthenia [None]
  - Apathy [None]
  - Decreased interest [None]
  - Hypoaesthesia [None]
  - Chest pain [None]
  - Palpitations [None]
  - Platelet count decreased [None]
  - Loss of consciousness [None]
  - Job dissatisfaction [None]
